FAERS Safety Report 7510814-7 (Version None)
Quarter: 2011Q2

REPORT INFORMATION
  Report Type: 
  Country: None (occurrence: None)
  Receive Date: 20110531
  Receipt Date: 20110518
  Transmission Date: 20111010
  Serious: Yes (Other)
  Sender: FDA-Public Use
  Company Number: CZ-AMGEN-CZECT2011019990

PATIENT
  Age: 58 Year
  Sex: Male

DRUGS (4)
  1. HELICID                            /00661201/ [Concomitant]
  2. ETANERCEPT [Suspect]
     Indication: ANKYLOSING SPONDYLITIS
     Dosage: 50 MG, QWK
     Route: 058
     Dates: start: 20090801
  3. SULFASALAZINE [Concomitant]
  4. TRALGIT [Concomitant]

REACTIONS (1)
  - PROSTATE CANCER [None]
